FAERS Safety Report 11009173 (Version 1)
Quarter: 2015Q2

REPORT INFORMATION
  Report Type: Spontaneous
  Country: US (occurrence: US)
  Receive Date: 20150410
  Receipt Date: 20150410
  Transmission Date: 20150821
  Serious: No
  Sender: FDA-Public Use
  Company Number: US-PFIZER INC-2015120187

PATIENT
  Sex: Female

DRUGS (4)
  1. FLURBIPROFEN. [Suspect]
     Active Substance: FLURBIPROFEN
     Dosage: UNK
  2. MELOXICAM. [Suspect]
     Active Substance: MELOXICAM
     Dosage: UNK
  3. NAPROSYN [Suspect]
     Active Substance: NAPROXEN
     Dosage: UNK
  4. NAPROXEN SODIUM. [Suspect]
     Active Substance: NAPROXEN SODIUM
     Dosage: UNK

REACTIONS (1)
  - Drug ineffective [Unknown]
